FAERS Safety Report 6758590-X (Version None)
Quarter: 2010Q2

REPORT INFORMATION
  Report Type: 
  Country: None (occurrence: None)
  Receive Date: 20100602
  Receipt Date: 20100519
  Transmission Date: 20101027
  Serious: Yes (Hospitalization)
  Sender: FDA-Public Use
  Company Number: IDA-00368

PATIENT
  Age: 63 Year
  Sex: Male

DRUGS (5)
  1. PROPRANOLOL [Suspect]
     Indication: OESOPHAGEAL VARICES HAEMORRHAGE
     Dosage: 160 MG DAILY ORAL
     Route: 048
     Dates: start: 19990101
  2. ATACAND [Concomitant]
  3. (METFORMIN) [Concomitant]
  4. DIAMICRON (GLICLAZIDE) [Concomitant]
  5. ZOLPIDEM TARTRATE [Concomitant]

REACTIONS (1)
  - RAYNAUD'S PHENOMENON [None]
